FAERS Safety Report 8291851-4 (Version None)
Quarter: 2012Q2

REPORT INFORMATION
  Report Type: 
  Country: None (occurrence: None)
  Receive Date: 20120417
  Receipt Date: 20120410
  Transmission Date: 20120825
  Serious: Yes (Hospitalization, Other)
  Sender: FDA-Public Use
  Company Number: US-ELI_LILLY_AND_COMPANY-US201204003751

PATIENT
  Sex: Female

DRUGS (27)
  1. TRIAMCINOLONE [Concomitant]
  2. MUPIROCIN [Concomitant]
  3. LEVETIRACETAM [Concomitant]
     Dosage: 1000 MG, EACH EVENING
  4. TOPIRAMATE [Concomitant]
     Dosage: 50 MG, BID
  5. CALCIUM CARBONATE [Concomitant]
  6. GABAPENTIN [Concomitant]
     Dosage: BID
  7. HYDROXYZINE [Concomitant]
     Dosage: 10 MG, UNK
  8. LEVETIRACETAM [Concomitant]
     Dosage: 1500 MG, EACH MORNING
  9. HYDROXYZINE HCL [Concomitant]
     Dosage: 25 MG, TID
  10. ACETAMINOPHEN AND HYDROCODONE BITARTRATE [Concomitant]
     Dosage: UNK, PRN
  11. METFORMIN HCL [Concomitant]
     Dosage: 500 MG, BID
  12. SINGULAIR [Concomitant]
     Dosage: 10 MG, QD
  13. FORTEO [Suspect]
     Indication: OSTEOPOROSIS
     Dosage: 20 UG, QD
     Route: 065
     Dates: start: 20110528
  14. DOXEPIN HCL [Concomitant]
     Dosage: 10 MG, UNK
  15. CALCIUM +VIT D [Concomitant]
     Dosage: 2000 MG, QD
  16. EPIPEN [Concomitant]
  17. TOPIRAMATE [Concomitant]
     Dosage: 100 MG, BID
  18. LORAZEPAM [Concomitant]
     Dosage: 0.5 MG, TID
  19. LEXAPRO [Concomitant]
     Dosage: 20 MG, QD
  20. DESONIDE [Concomitant]
  21. MULTI-VITAMINS [Concomitant]
  22. LIDEX [Concomitant]
     Dosage: 120 MG, BID
  23. LOPERAMIDE [Concomitant]
     Dosage: 2 MG, UNK
  24. OMEPRAZOLE [Concomitant]
     Dosage: 20 MG, UNK
  25. DOXYCYCLINE HYCLATE [Concomitant]
     Dosage: 100 MG, UNK
  26. FORTEO [Suspect]
     Dosage: 20 UG, QD
     Route: 065
  27. VITAMIN D [Concomitant]
     Dosage: 1 MG, MONTHLY (1/M)

REACTIONS (13)
  - DIARRHOEA [None]
  - WEIGHT DECREASED [None]
  - COMPLEX REGIONAL PAIN SYNDROME [None]
  - PAIN [None]
  - BLOOD GLUCOSE DECREASED [None]
  - VOMITING [None]
  - HYPOPHAGIA [None]
  - CONVULSION [None]
  - RASH [None]
  - ASTHENIA [None]
  - NAUSEA [None]
  - INFLUENZA [None]
  - OEDEMA PERIPHERAL [None]
